FAERS Safety Report 4402036-3 (Version None)
Quarter: 2004Q3

REPORT INFORMATION
  Report Type: 
  Country: None (occurrence: None)
  Receive Date: 20040719
  Receipt Date: 20040719
  Transmission Date: 20050211
  Serious: Yes (Life-Threatening, Other)
  Sender: FDA-Public Use
  Company Number: None

PATIENT
  Age: 30 Year
  Sex: Female
  Weight: 79.3795 kg

DRUGS (2)
  1. EFFEXOR XR [Suspect]
     Indication: DYSPHORIA
     Dosage: 300 MG  DAILY  ORAL
     Route: 048
     Dates: start: 19980801, end: 20040428
  2. EFFEXOR XR [Suspect]
     Indication: DYSTHYMIC DISORDER
     Dosage: 300 MG  DAILY  ORAL
     Route: 048
     Dates: start: 19980801, end: 20040428

REACTIONS (5)
  - ASTHENIA [None]
  - DEPRESSION [None]
  - FATIGUE [None]
  - NAUSEA [None]
  - PANIC ATTACK [None]
